FAERS Safety Report 4998793-8 (Version None)
Quarter: 2006Q2

REPORT INFORMATION
  Report Type: 
  Country: None (occurrence: None)
  Receive Date: 20060510
  Receipt Date: 20050914
  Transmission Date: 20061013
  Serious: Yes (Hospitalization)
  Sender: FDA-Public Use
  Company Number: US-MERCK-0509USA02220

PATIENT
  Age: 53 Year
  Sex: Male
  Weight: 98 kg

DRUGS (9)
  1. VIOXX [Suspect]
     Indication: DISCOMFORT
     Route: 048
     Dates: start: 20010401, end: 20040901
  2. ULTRAM [Concomitant]
     Indication: DISCOMFORT
     Route: 065
     Dates: start: 20010401
  3. TOPROL-XL [Concomitant]
     Route: 065
  4. ZOCOR [Concomitant]
     Route: 065
  5. ASPIRIN [Concomitant]
     Route: 065
  6. [THERAPY UNSPECIFIED] [Concomitant]
     Route: 065
  7. PRAVACHOL [Concomitant]
     Route: 065
  8. ULTRACET [Concomitant]
     Route: 065
  9. VITAMINS (UNSPECIFIED) [Concomitant]
     Route: 065

REACTIONS (15)
  - ACUTE MYOCARDIAL INFARCTION [None]
  - ANOSMIA [None]
  - ANXIETY [None]
  - ARRHYTHMIA [None]
  - BRADYCARDIA [None]
  - DRUG ERUPTION [None]
  - MYOCARDIAL INFARCTION [None]
  - OEDEMA PERIPHERAL [None]
  - SHOULDER PAIN [None]
  - SINUSITIS [None]
  - STENT OCCLUSION [None]
  - STOMACH DISCOMFORT [None]
  - STRESS [None]
  - VENTRICULAR FIBRILLATION [None]
  - VENTRICULAR TACHYCARDIA [None]
